FAERS Safety Report 19628562 (Version 1)
Quarter: 2021Q3

REPORT INFORMATION
  Report Type: Spontaneous
  Country: CN (occurrence: CN)
  Receive Date: 20210729
  Receipt Date: 20210729
  Transmission Date: 20211014
  Serious: Yes (Other)
  Sender: FDA-Public Use
  Company Number: CN-BAXTER-2021BAX022329

PATIENT
  Age: 25 Year
  Sex: Male
  Weight: 55 kg

DRUGS (16)
  1. ENDOXAN [Suspect]
     Active Substance: CYCLOPHOSPHAMIDE
     Indication: NON-HODGKIN^S LYMPHOMA
     Dosage: 1?4 CYCLES OF HYPERCVAD A CHEMOTHERAPY, CYCLOPHOSPHAMIDE + 0.9% SODIUM CHLORIDE
     Route: 041
  2. 0.9% SODIUM CHLORIDE INJECTION [Suspect]
     Active Substance: SODIUM CHLORIDE
     Dosage: 1?4 CYCLES OF HYPERCVAD A CHEMOTHERAPY, 0.9% SODIUM CHLORIDE + EPIRUBICIN HYDROCHLORIDE
     Route: 041
  3. 0.9% SODIUM CHLORIDE INJECTION [Suspect]
     Active Substance: SODIUM CHLORIDE
     Dosage: 5TH CYCLE OF HYPERCVAD A CHEMOTHERAPY, 0.9% SODIUM CHLORIDE 100 ML + DEXAMETHASONE SODIUM PHOSPHATE
     Route: 041
     Dates: start: 20210702, end: 20210705
  4. 0.9% SODIUM CHLORIDE INJECTION [Suspect]
     Active Substance: SODIUM CHLORIDE
     Indication: MEDICATION DILUTION
     Dosage: 1?4 CYCLES OF HYPERCVAD ACHEMOTHERAPY, 0.9% SODIUM CHLORIDE + CYCLOPHOSPHAMIDE
     Route: 041
  5. XIAIKE [Suspect]
     Active Substance: VINDESINE
     Dosage: 5TH CYCLE OF HYPERCVAD A CHEMOTHERAPY, VINDESINE SULFATE 4 MG + 0.9% SODIUM CHLORIDE 30 ML, D4
     Route: 042
     Dates: start: 20210705, end: 20210705
  6. AIDASHENG [Suspect]
     Active Substance: EPIRUBICIN HYDROCHLORIDE
     Dosage: 5TH CYCLE OF HYPERCVAD A CHEMOTHERAPY, EPIRUBICIN HYDROCHLORIDE 118MG + 0.9% SODIUM CHLORIDE500 ML,
     Route: 041
     Dates: start: 20210705, end: 20210705
  7. XIAIKE [Suspect]
     Active Substance: VINDESINE
     Indication: NON-HODGKIN^S LYMPHOMA
     Dosage: 1?4 CYCLES OF HYPERCVAD A CHEMOTHERAPY, VINDESINE SULFATE + 0.9% SODIUM CHLORIDE
     Route: 042
  8. ENDOXAN [Suspect]
     Active Substance: CYCLOPHOSPHAMIDE
     Dosage: 5TH CYCLE OF HYPERCVAD A CHEMOTHERAPY, CYCLOPHOSPHAMIDE 472 MG + 0.9% SODIUM CHLORIDE 100 ML, D1?D3
     Route: 041
     Dates: start: 20210702, end: 20210704
  9. AIDASHENG [Suspect]
     Active Substance: EPIRUBICIN HYDROCHLORIDE
     Indication: NON-HODGKIN^S LYMPHOMA
     Dosage: 1?4 CYCLES OF HYPERCVAD A CHEMOTHERAPY, EPIRUBICIN HYDROCHLORIDE + 0.9% SODIUM CHLORIDE
     Route: 041
  10. DEXAMETHASONE SODIUM PHOSPHATE. [Suspect]
     Active Substance: DEXAMETHASONE SODIUM PHOSPHATE
     Indication: NON-HODGKIN^S LYMPHOMA
     Dosage: 1?4 CYCLES OF HYPERCVAD A CHEMOTHERAPY, DEXAMETHASONE SODIUM PHOSPHATE + 0.9% SODIUM CHLORIDE
     Route: 041
  11. 0.9% SODIUM CHLORIDE INJECTION [Suspect]
     Active Substance: SODIUM CHLORIDE
     Dosage: 1?4 CYCLES OF HYPERCVAD A CHEMOTHERAPY, 0.9% SODIUM CHLORIDE + VINDESINE SULFATE
     Route: 042
  12. 0.9% SODIUM CHLORIDE INJECTION [Suspect]
     Active Substance: SODIUM CHLORIDE
     Dosage: 5TH CYCLE OF HYPERCVAD A CHEMOTHERAPY, 0.9% SODIUM CHLORIDE 30 ML + VINDESINE SULFATE 4 MG, D4
     Route: 042
     Dates: start: 20210705, end: 20210705
  13. 0.9% SODIUM CHLORIDE INJECTION [Suspect]
     Active Substance: SODIUM CHLORIDE
     Dosage: 5TH CYCLE OF HYPERCVAD A CHEMOTHERAPY, 0.9% SODIUM CHLORIDE 100 ML + CYCLOPHOSPHAMIDE 472 MG, D1?D3
     Route: 041
     Dates: start: 20210702, end: 20210704
  14. 0.9% SODIUM CHLORIDE INJECTION [Suspect]
     Active Substance: SODIUM CHLORIDE
     Dosage: 5TH CYCLE OF HYPERCVAD A CHEMOTHERAPY, 0.9% SODIUM CHLORIDE500 ML + EPIRUBICIN HYDROCHLORIDE 118MG,
     Route: 041
     Dates: start: 20210705, end: 20210705
  15. DEXAMETHASONE SODIUM PHOSPHATE. [Suspect]
     Active Substance: DEXAMETHASONE SODIUM PHOSPHATE
     Dosage: 5TH CYCLE OF HYPERCVAD A CHEMOTHERAPY, DEXAMETHASONE SODIUM PHOSPHATE 40MG + 0.9% SODIUM CHLORIDE 10
     Route: 041
     Dates: start: 20210702, end: 20210705
  16. 0.9% SODIUM CHLORIDE INJECTION [Suspect]
     Active Substance: SODIUM CHLORIDE
     Dosage: 1?4 CYCLES OF HYPERCVAD A CHEMOTHERAPY, 0.9% SODIUM CHLORIDE + DEXAMETHASONE SODIUM PHOSPHATE
     Route: 041

REACTIONS (2)
  - White blood cell count decreased [Recovering/Resolving]
  - Neutrophil count decreased [Recovering/Resolving]

NARRATIVE: CASE EVENT DATE: 20210713
